FAERS Safety Report 17200403 (Version 3)
Quarter: 2021Q3

REPORT INFORMATION
  Report Type: Spontaneous
  Country: US (occurrence: US)
  Receive Date: 20191226
  Receipt Date: 20210721
  Transmission Date: 20211014
  Serious: Yes (Other)
  Sender: FDA-Public Use
  Company Number: US-ASTRAZENECA-2019SF85906

PATIENT
  Age: 34 Year
  Sex: Female

DRUGS (98)
  1. NEXIUM [Suspect]
     Active Substance: ESOMEPRAZOLE MAGNESIUM
     Indication: GASTROOESOPHAGEAL REFLUX DISEASE
     Dosage: GENERIC
     Route: 065
     Dates: start: 2015, end: 2019
  2. NEXIUM [Suspect]
     Active Substance: ESOMEPRAZOLE MAGNESIUM
     Indication: DYSPEPSIA
     Dosage: GENERIC
     Route: 065
     Dates: start: 2015, end: 2019
  3. NEXIUM 24HR [Suspect]
     Active Substance: ESOMEPRAZOLE MAGNESIUM
     Indication: DYSPEPSIA
     Route: 048
     Dates: start: 2014, end: 2018
  4. TYLENOL [Concomitant]
     Active Substance: ACETAMINOPHEN
     Indication: PAIN
  5. DIPHENOXY/ATROP [Concomitant]
  6. PHENERGAN [Concomitant]
     Active Substance: PROMETHAZINE HYDROCHLORIDE
  7. VANCOMYCIN [Concomitant]
     Active Substance: VANCOMYCIN
  8. DONAZEPAM [Concomitant]
  9. SOLU?MEDROL [Concomitant]
     Active Substance: METHYLPREDNISOLONE SODIUM SUCCINATE
  10. VALIUM [Concomitant]
     Active Substance: DIAZEPAM
  11. NEXIUM [Suspect]
     Active Substance: ESOMEPRAZOLE MAGNESIUM
     Indication: FLATULENCE
     Route: 048
     Dates: start: 200102, end: 201812
  12. PRILOSEC OTC [Suspect]
     Active Substance: OMEPRAZOLE MAGNESIUM
     Indication: DYSPEPSIA
     Route: 048
     Dates: start: 2003
  13. TUMS [Concomitant]
     Active Substance: CALCIUM CARBONATE
  14. ALPRAZOLAM. [Concomitant]
     Active Substance: ALPRAZOLAM
  15. BUSPIRONE [Concomitant]
     Active Substance: BUSPIRONE HYDROCHLORIDE
  16. PAROXETINE. [Concomitant]
     Active Substance: PAROXETINE
  17. KETOCONAZOLE. [Concomitant]
     Active Substance: KETOCONAZOLE
  18. FERROUS SULFATE. [Concomitant]
     Active Substance: FERROUS SULFATE
  19. NAPROSYN [Concomitant]
     Active Substance: NAPROXEN
  20. PROZAC [Concomitant]
     Active Substance: FLUOXETINE HYDROCHLORIDE
  21. ZOLOFT [Concomitant]
     Active Substance: SERTRALINE HYDROCHLORIDE
  22. FERRITIN [Concomitant]
     Active Substance: FERRITIN
  23. FOLIC ACID. [Concomitant]
     Active Substance: FOLIC ACID
  24. NEXIUM [Suspect]
     Active Substance: ESOMEPRAZOLE MAGNESIUM
     Indication: GASTROOESOPHAGEAL REFLUX DISEASE
     Route: 048
     Dates: start: 2001, end: 2018
  25. NEXIUM [Suspect]
     Active Substance: ESOMEPRAZOLE MAGNESIUM
     Indication: FLATULENCE
     Route: 048
     Dates: start: 2001, end: 2018
  26. NEXIUM 24HR [Suspect]
     Active Substance: ESOMEPRAZOLE MAGNESIUM
     Indication: FLATULENCE
     Route: 048
     Dates: start: 2014, end: 2018
  27. OMEPRAZOLE. [Suspect]
     Active Substance: OMEPRAZOLE
     Indication: FLATULENCE
     Dosage: GENERIC
     Route: 065
     Dates: start: 20191009
  28. TAGAMET [Suspect]
     Active Substance: CIMETIDINE
     Route: 065
  29. TAGAMET [Suspect]
     Active Substance: CIMETIDINE
     Dosage: GENERIC
     Route: 065
  30. HYDROMET [Concomitant]
     Active Substance: HOMATROPINE METHYLBROMIDE\HYDROCODONE BITARTRATE
  31. DICLOFENAC [Concomitant]
     Active Substance: DICLOFENAC
  32. VITAMIN D [Concomitant]
     Active Substance: VITAMIN D NOS
  33. ZANTAC [Concomitant]
     Active Substance: RANITIDINE HYDROCHLORIDE
  34. NITROGLYCERIN. [Concomitant]
     Active Substance: NITROGLYCERIN
  35. MONOHYDRATE/MICROCRYSTAL [Concomitant]
  36. MEDROL [Concomitant]
     Active Substance: METHYLPREDNISOLONE
  37. SERTRALINE [Concomitant]
     Active Substance: SERTRALINE HYDROCHLORIDE
  38. SENNA [Concomitant]
     Active Substance: SENNA LEAF\SENNOSIDES\SENNOSIDES A AND B
  39. AMITIZA [Concomitant]
     Active Substance: LUBIPROSTONE
  40. HYDROXYZINE [Concomitant]
     Active Substance: HYDROXYZINE HYDROCHLORIDE
  41. NEXIUM [Suspect]
     Active Substance: ESOMEPRAZOLE MAGNESIUM
     Indication: DYSPEPSIA
     Dosage: 20.0MG UNKNOWN
     Route: 048
     Dates: start: 2001
  42. NEXIUM [Suspect]
     Active Substance: ESOMEPRAZOLE MAGNESIUM
     Indication: FLATULENCE
     Dosage: GENERIC20.0MG UNKNOWN
     Route: 065
     Dates: start: 2001
  43. OMEPRAZOLE. [Suspect]
     Active Substance: OMEPRAZOLE
     Indication: DYSPEPSIA
     Dosage: GENERIC
     Route: 065
     Dates: start: 20191009
  44. PEPCID [Suspect]
     Active Substance: FAMOTIDINE
     Route: 065
  45. CIPROFLOXACIN. [Concomitant]
     Active Substance: CIPROFLOXACIN
     Indication: INFECTION
  46. CITALOPRAM [Concomitant]
     Active Substance: CITALOPRAM HYDROBROMIDE
  47. ULTRAM [Concomitant]
     Active Substance: TRAMADOL HYDROCHLORIDE
  48. PERCOCET [Concomitant]
     Active Substance: ACETAMINOPHEN\OXYCODONE HYDROCHLORIDE
  49. FLEXERIL [Concomitant]
     Active Substance: CYCLOBENZAPRINE HYDROCHLORIDE
  50. PENICILLIN [Concomitant]
     Active Substance: PENICILLIN
  51. BENTYL [Concomitant]
     Active Substance: DICYCLOMINE HYDROCHLORIDE
  52. MENTHOL. [Concomitant]
     Active Substance: MENTHOL
  53. LACTULOSE. [Concomitant]
     Active Substance: LACTULOSE
  54. NEXIUM [Suspect]
     Active Substance: ESOMEPRAZOLE MAGNESIUM
     Indication: GASTROOESOPHAGEAL REFLUX DISEASE
     Route: 048
     Dates: start: 200102, end: 201812
  55. NEXIUM [Suspect]
     Active Substance: ESOMEPRAZOLE MAGNESIUM
     Indication: GASTROOESOPHAGEAL REFLUX DISEASE
     Dosage: GENERIC20.0MG UNKNOWN
     Route: 065
     Dates: start: 2001
  56. IBUPROFEN. [Concomitant]
     Active Substance: IBUPROFEN
     Indication: PAIN
  57. ASPIRIN. [Concomitant]
     Active Substance: ASPIRIN
     Indication: BODY TEMPERATURE ABNORMAL
  58. TYLENOL [Concomitant]
     Active Substance: ACETAMINOPHEN
     Indication: BODY TEMPERATURE ABNORMAL
  59. CARISOPRODOL. [Concomitant]
     Active Substance: CARISOPRODOL
  60. PHENAZOPYRIDINE. [Concomitant]
     Active Substance: PHENAZOPYRIDINE
  61. DIFLUCAN [Concomitant]
     Active Substance: FLUCONAZOLE
  62. BACLOFEN. [Concomitant]
     Active Substance: BACLOFEN
  63. MIRTAZAPINE. [Concomitant]
     Active Substance: MIRTAZAPINE
  64. NEXIUM [Suspect]
     Active Substance: ESOMEPRAZOLE MAGNESIUM
     Indication: DYSPEPSIA
     Route: 048
     Dates: start: 200102, end: 201812
  65. NEXIUM [Suspect]
     Active Substance: ESOMEPRAZOLE MAGNESIUM
     Indication: DYSPEPSIA
     Dosage: GENERIC20.0MG UNKNOWN
     Route: 065
     Dates: start: 2001
  66. PREVACID 24 HR [Suspect]
     Active Substance: LANSOPRAZOLE
     Indication: FLATULENCE
     Route: 065
     Dates: start: 2009, end: 2019
  67. SULFAMETHOXAZOLE [Concomitant]
     Active Substance: SULFAMETHOXAZOLE
     Indication: INFECTION
  68. AMOXICILLIN. [Concomitant]
     Active Substance: AMOXICILLIN
     Indication: INFECTION
  69. IBUPROFEN. [Concomitant]
     Active Substance: IBUPROFEN
     Indication: BODY TEMPERATURE ABNORMAL
  70. OXYCODONE [Concomitant]
     Active Substance: OXYCODONE
  71. ONDANSETRON [Concomitant]
     Active Substance: ONDANSETRON
  72. HYDROCODONE BITARTRATE AND ACETAMINOPHEN [Concomitant]
     Active Substance: ACETAMINOPHEN\HYDROCODONE BITARTRATE
  73. ESTRADIOL. [Concomitant]
     Active Substance: ESTRADIOL
  74. NARCAN [Concomitant]
     Active Substance: NALOXONE HYDROCHLORIDE
  75. ELMIRON [Concomitant]
     Active Substance: PENTOSAN POLYSULFATE SODIUM
  76. AMBIEN [Concomitant]
     Active Substance: ZOLPIDEM TARTRATE
  77. NEXIUM [Suspect]
     Active Substance: ESOMEPRAZOLE MAGNESIUM
     Indication: DYSPEPSIA
     Route: 048
     Dates: start: 2001, end: 2018
  78. NEXIUM [Suspect]
     Active Substance: ESOMEPRAZOLE MAGNESIUM
     Indication: FLATULENCE
     Dosage: 20.0MG UNKNOWN
     Route: 048
     Dates: start: 2001
  79. RANITIDINE. [Suspect]
     Active Substance: RANITIDINE
     Route: 065
  80. SMZ?TMP [Concomitant]
     Active Substance: SULFAMETHOXAZOLE\TRIMETHOPRIM
  81. CEPHALEXIN. [Concomitant]
     Active Substance: CEPHALEXIN
  82. REGLAN [Concomitant]
     Active Substance: METOCLOPRAMIDE HYDROCHLORIDE
  83. BENZODIAZEPINE [Concomitant]
     Active Substance: BENZODIAZEPINE
  84. NEXIUM [Suspect]
     Active Substance: ESOMEPRAZOLE MAGNESIUM
     Indication: FLATULENCE
     Dosage: GENERIC
     Route: 065
     Dates: start: 2015, end: 2019
  85. NEXIUM [Suspect]
     Active Substance: ESOMEPRAZOLE MAGNESIUM
     Indication: GASTROOESOPHAGEAL REFLUX DISEASE
     Dosage: 20.0MG UNKNOWN
     Route: 048
     Dates: start: 2001
  86. PRILOSEC OTC [Suspect]
     Active Substance: OMEPRAZOLE MAGNESIUM
     Indication: FLATULENCE
     Route: 048
     Dates: start: 2003
  87. PREVACID 24 HR [Suspect]
     Active Substance: LANSOPRAZOLE
     Indication: DYSPEPSIA
     Route: 065
     Dates: start: 2009, end: 2019
  88. ASPIRIN. [Concomitant]
     Active Substance: ASPIRIN
     Indication: PAIN
  89. AMOX /CLAV [Concomitant]
  90. CHLORDIAZEPOXIDE/AMIT [Concomitant]
  91. RANITIDINE. [Concomitant]
     Active Substance: RANITIDINE
  92. FLAGYL [Concomitant]
     Active Substance: METRONIDAZOLE\METRONIDAZOLE HYDROCHLORIDE
  93. ROLAIDS [Concomitant]
     Active Substance: CALCIUM CARBONATE\MAGNESIUM HYDROXIDE
  94. BIOXIN [Concomitant]
     Active Substance: INOSINE
  95. CELEXA [Concomitant]
     Active Substance: CITALOPRAM HYDROBROMIDE
  96. PYRIDIUM [Concomitant]
     Active Substance: PHENAZOPYRIDINE
  97. ROCEPHIN [Concomitant]
     Active Substance: CEFTRIAXONE SODIUM
  98. TORADOL [Concomitant]
     Active Substance: KETOROLAC TROMETHAMINE

REACTIONS (4)
  - Dyspepsia [Not Recovered/Not Resolved]
  - Chronic kidney disease [Unknown]
  - Acute kidney injury [Not Recovered/Not Resolved]
  - Gastritis [Not Recovered/Not Resolved]

NARRATIVE: CASE EVENT DATE: 2003
